FAERS Safety Report 10962760 (Version 1)
Quarter: 2015Q1

REPORT INFORMATION
  Report Type: Spontaneous
  Country: US (occurrence: US)
  Receive Date: 20150327
  Receipt Date: 20150327
  Transmission Date: 20150721
  Serious: Yes (Other)
  Sender: FDA-Public Use
  Company Number: US-GLAXOSMITHKLINE-US2015039675

PATIENT
  Sex: Male

DRUGS (7)
  1. BREO ELLIPTA [Suspect]
     Active Substance: FLUTICASONE FUROATE\VILANTEROL TRIFENATATE
     Indication: CHRONIC OBSTRUCTIVE PULMONARY DISEASE
     Route: 055
  2. XALATAN [Suspect]
     Active Substance: LATANOPROST
     Dosage: 2 GTT, QD
  3. HYDROGEN PEROXIDE. [Concomitant]
     Active Substance: HYDROGEN PEROXIDE
  4. DALIRESP [Concomitant]
     Active Substance: ROFLUMILAST
  5. VENTOLIN HFA [Suspect]
     Active Substance: ALBUTEROL SULFATE
     Indication: WHEEZING
     Dosage: 2 PUFF(S), PRN
     Route: 055
     Dates: start: 201402
  6. XALATAN [Suspect]
     Active Substance: LATANOPROST
     Indication: GLAUCOMA
     Dosage: 1 GTT, 1D
     Route: 061
  7. TIMOLOL EYE DROPS [Concomitant]

REACTIONS (4)
  - Intentional product use issue [Unknown]
  - Drug ineffective [Unknown]
  - Glaucoma [Not Recovered/Not Resolved]
  - Ocular discomfort [Recovered/Resolved]
